FAERS Safety Report 11121542 (Version 1)
Quarter: 2015Q2

REPORT INFORMATION
  Report Type: Spontaneous
  Country: US (occurrence: None)
  Receive Date: 20150518
  Receipt Date: 20150518
  Transmission Date: 20150821
  Serious: Yes (Hospitalization)
  Sender: FDA-Public Use
  Company Number: None

PATIENT
  Age: 74 Year
  Sex: Male
  Weight: 72.7 kg

DRUGS (1)
  1. DABIGATRAN [Suspect]
     Active Substance: DABIGATRAN
     Indication: ATRIAL FIBRILLATION
     Route: 048
     Dates: start: 20141008, end: 20150504

REACTIONS (9)
  - Diverticulum [None]
  - Haemorrhoids [None]
  - Gastric haemorrhage [None]
  - Haemoglobin decreased [None]
  - Gastrointestinal angiodysplasia [None]
  - Pain in extremity [None]
  - Gastrointestinal arteriovenous malformation [None]
  - Dizziness [None]
  - Alcohol use [None]

NARRATIVE: CASE EVENT DATE: 20150504
